FAERS Safety Report 5272584-5 (Version None)
Quarter: 2007Q1

REPORT INFORMATION
  Report Type: 
  Country: None (occurrence: None)
  Receive Date: 20070322
  Receipt Date: 20070316
  Transmission Date: 20070707
  Serious: Yes (Other)
  Sender: FDA-Public Use
  Company Number: US-PURDUE-USA_2007_0026784

PATIENT
  Age: 35 Year
  Sex: Male

DRUGS (2)
  1. OXYCODONE HCL [Suspect]
     Indication: DRUG ABUSER
     Dosage: UNK MG, UNK
  2. XANAX [Suspect]
     Indication: DRUG ABUSER
     Dosage: UNK MG, UNK

REACTIONS (6)
  - CONFUSIONAL STATE [None]
  - CRYING [None]
  - LOSS OF CONSCIOUSNESS [None]
  - MENTAL DISORDER [None]
  - PHYSICAL ASSAULT [None]
  - ROAD TRAFFIC ACCIDENT [None]
